FAERS Safety Report 11120708 (Version 3)
Quarter: 2015Q2

REPORT INFORMATION
  Report Type: Spontaneous
  Country: US (occurrence: US)
  Receive Date: 20150519
  Receipt Date: 20150604
  Transmission Date: 20150821
  Serious: No
  Sender: FDA-Public Use
  Company Number: US-BAYER-2015-157546

PATIENT
  Age: 70 Year
  Sex: Female

DRUGS (1)
  1. FINACEA [Suspect]
     Active Substance: AZELAIC ACID
     Indication: ECZEMA NUMMULAR
     Dosage: 50 G BID TO DARK AREAS
     Dates: start: 20150402

REACTIONS (9)
  - Erythema [None]
  - Eczema nummular [None]
  - Headache [None]
  - Rhinorrhoea [None]
  - Skin hyperpigmentation [None]
  - Skin irritation [None]
  - Rash pruritic [Recovered/Resolved]
  - Off label use [None]
  - Erythema [None]

NARRATIVE: CASE EVENT DATE: 20150402
